FAERS Safety Report 23453688 (Version 3)
Quarter: 2024Q2

REPORT INFORMATION
  Report Type: Report from Study
  Country: JP (occurrence: JP)
  Receive Date: 20240129
  Receipt Date: 20240519
  Transmission Date: 20240716
  Serious: Yes (Hospitalization, Other)
  Sender: FDA-Public Use
  Company Number: JP-SA-2024SA030045

PATIENT
  Age: 68 Year
  Sex: Male
  Weight: 41 kg

DRUGS (9)
  1. VANDETANIB [Suspect]
     Active Substance: VANDETANIB
     Indication: Medullary thyroid cancer
     Dosage: UNK
     Route: 048
     Dates: start: 20230104, end: 2023
  2. VANDETANIB [Suspect]
     Active Substance: VANDETANIB
     Dosage: DAILY DOSE: 100 MG
     Route: 048
     Dates: start: 20230830, end: 20231014
  3. VONOPRAZAN FUMARATE [Concomitant]
     Active Substance: VONOPRAZAN FUMARATE
     Indication: Gastrooesophageal reflux disease
     Dosage: 10 MG
     Route: 048
     Dates: end: 20231024
  4. CALCIUM ASPARTATE [Concomitant]
     Active Substance: CALCIUM ASPARTATE
     Indication: Hypocalcaemia
     Dosage: 1600 MG
     Route: 048
     Dates: end: 2023
  5. CALCIUM ASPARTATE [Concomitant]
     Active Substance: CALCIUM ASPARTATE
     Dosage: DOSE REDUCED
     Route: 048
     Dates: start: 2023, end: 20230926
  6. CALCIUM ASPARTATE [Concomitant]
     Active Substance: CALCIUM ASPARTATE
     Dosage: DAILY DOSE: 600 MG
     Route: 048
     Dates: start: 20230927, end: 20231024
  7. LEVOTHYROXINE [Concomitant]
     Active Substance: LEVOTHYROXINE\LEVOTHYROXINE SODIUM
     Indication: Post procedural hypothyroidism
     Dosage: 100 UG
     Route: 048
     Dates: end: 20231024
  8. FEXOFENADINE HYDROCHLORIDE [Concomitant]
     Active Substance: FEXOFENADINE HYDROCHLORIDE
     Indication: Pruritus
     Dosage: 60 MG
     Route: 048
     Dates: start: 20230830, end: 20231024
  9. CLOBETASOL [Concomitant]
     Active Substance: CLOBETASOL
     Indication: Photosensitivity reaction
     Dosage: UNK
     Route: 061
     Dates: start: 20230531, end: 20231024

REACTIONS (1)
  - Pneumonia [Recovered/Resolved]

NARRATIVE: CASE EVENT DATE: 20231014
